FAERS Safety Report 21141789 (Version 5)
Quarter: 2023Q1

REPORT INFORMATION
  Report Type: Spontaneous
  Country: US (occurrence: US)
  Receive Date: 20220728
  Receipt Date: 20230327
  Transmission Date: 20230418
  Serious: Yes (Hospitalization, Other)
  Sender: FDA-Public Use
  Company Number: US-SA-SAC20220726001174

PATIENT
  Age: 6 Year
  Sex: Male

DRUGS (8)
  1. ELOCTATE [Suspect]
     Active Substance: EFMOROCTOCOG ALFA
     Indication: Factor VIII deficiency
     Dosage: 1150 IU, Q4D
     Route: 042
     Dates: start: 202205
  2. ELOCTATE [Suspect]
     Active Substance: EFMOROCTOCOG ALFA
     Dosage: 1060 U
     Route: 042
     Dates: start: 202205
  3. ELOCTATE [Suspect]
     Active Substance: EFMOROCTOCOG ALFA
     Dosage: 245 U
     Route: 042
     Dates: start: 202205
  4. ELOCTATE [Suspect]
     Active Substance: EFMOROCTOCOG ALFA
     Dosage: 1215 U (1094-1336), Q4D
     Route: 042
  5. ELOCTATE [Suspect]
     Active Substance: EFMOROCTOCOG ALFA
     Dosage: 1200 U, Q4D
     Route: 042
     Dates: start: 20220505
  6. ELOCTATE [Suspect]
     Active Substance: EFMOROCTOCOG ALFA
     Dosage: 657 U, QD
     Route: 042
     Dates: start: 202207
  7. ELOCTATE [Suspect]
     Active Substance: EFMOROCTOCOG ALFA
     Dosage: 121 U, Q4D
     Route: 042
     Dates: start: 202212
  8. HEMLIBRA [Concomitant]
     Active Substance: EMICIZUMAB-KXWH

REACTIONS (8)
  - Internal haemorrhage [Recovered/Resolved]
  - Joint microhaemorrhage [Recovered/Resolved]
  - Joint injury [Unknown]
  - Pain in extremity [Unknown]
  - Haemorrhage [Recovered/Resolved]
  - Arthralgia [Unknown]
  - Pain in extremity [Unknown]
  - Tongue haemorrhage [Recovered/Resolved]

NARRATIVE: CASE EVENT DATE: 20220101
